FAERS Safety Report 8336070-8 (Version None)
Quarter: 2012Q2

REPORT INFORMATION
  Report Type: 
  Country: None (occurrence: None)
  Receive Date: 20120504
  Receipt Date: 20120427
  Transmission Date: 20120825
  Serious: No
  Sender: FDA-Public Use
  Company Number: US-JNJFOC-20120403029

PATIENT
  Sex: Female
  Weight: 55.34 kg

DRUGS (2)
  1. DURAGESIC-100 [Suspect]
     Indication: OVARIAN CANCER
     Route: 062
     Dates: start: 20111101
  2. FENTANYL-100 [Suspect]
     Indication: OVARIAN CANCER
     Route: 062
     Dates: start: 20111101, end: 20111101

REACTIONS (2)
  - WRONG TECHNIQUE IN DRUG USAGE PROCESS [None]
  - DRUG EFFECT DECREASED [None]
